FAERS Safety Report 6523135-6 (Version None)
Quarter: 2009Q4

REPORT INFORMATION
  Report Type: 
  Country: None (occurrence: None)
  Receive Date: 20091222
  Receipt Date: 20091214
  Transmission Date: 20100525
  Serious: Yes (Hospitalization)
  Sender: FDA-Public Use
  Company Number: 2009SP041458

PATIENT
  Sex: Male

DRUGS (1)
  1. DESLORATADINE [Suspect]
     Indication: URTICARIA

REACTIONS (2)
  - SKIN DISCOLOURATION [None]
  - URTICARIA [None]
